FAERS Safety Report 21316668 (Version 3)
Quarter: 2022Q4

REPORT INFORMATION
  Report Type: Spontaneous
  Country: US (occurrence: US)
  Receive Date: 20220911
  Receipt Date: 20221228
  Transmission Date: 20230113
  Serious: No
  Sender: FDA-Public Use
  Company Number: US-SA-SAC20220817002164

PATIENT
  Sex: Male

DRUGS (4)
  1. DUPIXENT [Suspect]
     Active Substance: DUPILUMAB
     Indication: Dermatitis atopic
     Dosage: 300 MG, QOW
     Route: 058
     Dates: start: 20181127
  2. DUPIXENT [Suspect]
     Active Substance: DUPILUMAB
     Indication: Hyper IgM syndrome
  3. DUPIXENT [Suspect]
     Active Substance: DUPILUMAB
     Indication: Hyper IgM syndrome
     Dosage: 300 MG, QOW
     Route: 058
     Dates: start: 20181127
  4. DUPIXENT [Suspect]
     Active Substance: DUPILUMAB
     Indication: Dermatitis atopic

REACTIONS (2)
  - Erythema [Unknown]
  - Product use in unapproved indication [Unknown]
